FAERS Safety Report 17917110 (Version 2)
Quarter: 2020Q3

REPORT INFORMATION
  Report Type: Spontaneous
  Country: US (occurrence: US)
  Receive Date: 20200619
  Receipt Date: 20200703
  Transmission Date: 20201103
  Serious: Yes (Other)
  Sender: FDA-Public Use
  Company Number: US-PFIZER INC-2020238518

PATIENT
  Sex: Female

DRUGS (2)
  1. CHANTIX [Suspect]
     Active Substance: VARENICLINE TARTRATE
     Indication: SMOKING CESSATION THERAPY
     Dosage: UNK
     Route: 048
     Dates: start: 20200608, end: 20200612
  2. AMITREX [Concomitant]
     Active Substance: AMISULPRIDE
     Dosage: UNK

REACTIONS (6)
  - Behaviour disorder [Recovering/Resolving]
  - Self-injurious ideation [Unknown]
  - Suicidal behaviour [Recovering/Resolving]
  - Physical assault [Unknown]
  - Acute psychosis [Recovered/Resolved]
  - Disinhibition [Recovered/Resolved]
